FAERS Safety Report 8860296 (Version 1)
Quarter: 2012Q4

REPORT INFORMATION
  Report Type: 
  Country: GB (occurrence: GB)
  Receive Date: 20121025
  Receipt Date: 20121025
  Transmission Date: 20130627
  Serious: Yes (Other)
  Sender: FDA-Public Use
  Company Number: GB-RANBAXY-2012R1-61078

PATIENT
  Age: 50 Year
  Sex: Male
  Weight: 90 kg

DRUGS (2)
  1. NAPROXEN [Suspect]
     Indication: EPICONDYLITIS
     Dosage: 500 mg, bid
     Route: 048
     Dates: start: 20120903
  2. CLOMIPRAMINE [Concomitant]
     Indication: PRODUCT USED FOR UNKNOWN INDICATION
     Dosage: UNK
     Route: 048
     Dates: start: 20120119

REACTIONS (1)
  - Contusion [Not Recovered/Not Resolved]
